FAERS Safety Report 4543599-7 (Version None)
Quarter: 2005Q1

REPORT INFORMATION
  Report Type: 
  Country: None (occurrence: None)
  Receive Date: 20050103
  Receipt Date: 20041112
  Transmission Date: 20050727
  Serious: Yes (Hospitalization, Other)
  Sender: FDA-Public Use
  Company Number: 2004JP001966

PATIENT
  Age: 77 Year
  Sex: Female
  Weight: 49 kg

DRUGS (7)
  1. SAWACILLIN [Suspect]
     Indication: INFECTION PROPHYLAXIS
     Dosage: 250MG FOUR TIMES PER DAY
     Route: 048
     Dates: start: 20041026, end: 20041107
  2. AZULENE [Concomitant]
     Route: 065
     Dates: start: 20041026, end: 20041107
  3. GLUTAMINE [Concomitant]
     Route: 065
     Dates: start: 20041026, end: 20041107
  4. BIOFERMIN R [Concomitant]
     Route: 065
     Dates: start: 20041026, end: 20041107
  5. CEFAZOLIN [Concomitant]
     Route: 065
     Dates: start: 20041018, end: 20041025
  6. FERROUS CITRATE [Concomitant]
     Route: 065
     Dates: start: 20040921, end: 20041107
  7. ACETYLSALICYLIC ACID SRT [Concomitant]
     Route: 065
     Dates: start: 20041019, end: 20041107

REACTIONS (17)
  - ALANINE AMINOTRANSFERASE INCREASED [None]
  - ANOREXIA [None]
  - ASPARTATE AMINOTRANSFERASE INCREASED [None]
  - BLOOD ALKALINE PHOSPHATASE INCREASED [None]
  - BLOOD LACTATE DEHYDROGENASE INCREASED [None]
  - CHILLS [None]
  - DIARRHOEA [None]
  - GAMMA-GLUTAMYLTRANSFERASE INCREASED [None]
  - HEADACHE [None]
  - HEPATIC FUNCTION ABNORMAL [None]
  - NAUSEA [None]
  - PYREXIA [None]
  - RASH [None]
  - TOXIC SKIN ERUPTION [None]
  - TREMOR [None]
  - VOMITING [None]
  - WHITE BLOOD CELL COUNT DECREASED [None]
